FAERS Safety Report 7861639-4 (Version None)
Quarter: 2011Q4

REPORT INFORMATION
  Report Type: 
  Country: None (occurrence: None)
  Receive Date: 20111027
  Receipt Date: 20111017
  Transmission Date: 20120403
  Serious: Yes (Other)
  Sender: FDA-Public Use
  Company Number: PHHY2011GB91415

PATIENT
  Age: 71 Year
  Sex: Male
  Weight: 62.5 kg

DRUGS (11)
  1. CITALOPRAM HYDROBROMIDE [Concomitant]
  2. COLPERMIN [Concomitant]
  3. RAMIPRIL [Concomitant]
  4. ESOMEPRAZOLE SODIUM [Concomitant]
  5. QUININE SULFATE [Concomitant]
  6. QUININE SULFATE [Concomitant]
  7. SIMVASTATIN [Concomitant]
  8. ASPIRIN [Concomitant]
  9. CLOPIDOGREL [Concomitant]
  10. DIPYRIDAMOLE [Concomitant]
  11. GALANTAMINE HYDROBROMIDE [Suspect]
     Indication: VASCULAR DEMENTIA
     Dosage: 24 MG, UNK
     Route: 048
     Dates: start: 20110412, end: 20110906

REACTIONS (6)
  - CIRCULATORY COLLAPSE [None]
  - HYPOTHERMIA [None]
  - WHITE BLOOD CELL COUNT ABNORMAL [None]
  - CONVULSION [None]
  - SYNCOPE [None]
  - STATUS EPILEPTICUS [None]
